FAERS Safety Report 24576321 (Version 1)
Quarter: 2024Q4

REPORT INFORMATION
  Report Type: Spontaneous
  Country: RO (occurrence: RO)
  Receive Date: 20241104
  Receipt Date: 20241104
  Transmission Date: 20250115
  Serious: Yes (Other)
  Sender: FRESENIUS KABI
  Company Number: None

PATIENT
  Age: 65 Year
  Sex: Female

DRUGS (3)
  1. OXALIPLATIN [Suspect]
     Active Substance: OXALIPLATIN
     Indication: Colon neoplasm
     Dosage: 200 MG
     Route: 042
     Dates: start: 20241016, end: 20241016
  2. HYDROCORTISONE HEMISUCCINATE [Concomitant]
     Active Substance: HYDROCORTISONE HEMISUCCINATE
     Indication: Premedication
     Dosage: 200 MG
     Dates: start: 20241016, end: 20241016
  3. CALCIUM GLUCONATE [Concomitant]
     Active Substance: CALCIUM GLUCONATE
     Indication: Premedication
     Dosage: 10 MG IN 250 ML SODIUM CHLORIDE 0.9%
     Dates: start: 20241016, end: 20241016

REACTIONS (4)
  - Anaphylactic reaction [Recovered/Resolved]
  - Laryngeal oedema [Recovered/Resolved]
  - Chills [Recovered/Resolved]
  - Agitation [Recovered/Resolved]

NARRATIVE: CASE EVENT DATE: 20241016
